FAERS Safety Report 22105595 (Version 2)
Quarter: 2023Q1

REPORT INFORMATION
  Report Type: Spontaneous
  Country: US (occurrence: US)
  Receive Date: 20230317
  Receipt Date: 20230330
  Transmission Date: 20230417
  Serious: No
  Sender: FDA-Public Use
  Company Number: US-Ipsen Biopharmaceuticals, Inc.-2023-06434

PATIENT
  Age: 37 Year
  Sex: Female

DRUGS (6)
  1. DYSPORT [Suspect]
     Active Substance: ABOBOTULINUMTOXINA
     Indication: Skin wrinkling
     Route: 065
     Dates: start: 20230222, end: 20230222
  2. DYSPORT [Suspect]
     Active Substance: ABOBOTULINUMTOXINA
     Indication: Skin wrinkling
  3. DYSPORT [Suspect]
     Active Substance: ABOBOTULINUMTOXINA
     Indication: Off label use
  4. BOTOX [Concomitant]
     Active Substance: ONABOTULINUMTOXINA
  5. JUVEDERM [Concomitant]
     Active Substance: HYALURONIC ACID
  6. HYALURONIC ACID [Concomitant]
     Active Substance: HYALURONIC ACID

REACTIONS (16)
  - Sinus disorder [Unknown]
  - Off label use [Unknown]
  - Headache [Unknown]
  - Lymphadenopathy [Recovering/Resolving]
  - Eyelid ptosis [Recovering/Resolving]
  - Feeling abnormal [Recovering/Resolving]
  - Dysphonia [Recovering/Resolving]
  - Sinusitis [Unknown]
  - Lacrimation increased [Unknown]
  - Eye discharge [Unknown]
  - Ocular hyperaemia [Unknown]
  - Eye disorder [Unknown]
  - Eye swelling [Unknown]
  - Eye colour change [Unknown]
  - Photophobia [Not Recovered/Not Resolved]
  - Myalgia [Not Recovered/Not Resolved]

NARRATIVE: CASE EVENT DATE: 20230222
